FAERS Safety Report 14187913 (Version 2)
Quarter: 2017Q4

REPORT INFORMATION
  Report Type: Spontaneous
  Country: US (occurrence: US)
  Receive Date: 20171114
  Receipt Date: 20171207
  Transmission Date: 20180321
  Serious: Yes (Other)
  Sender: FDA-Public Use
  Company Number: US-BAYER-2017-216497

PATIENT
  Sex: Female

DRUGS (3)
  1. CLARITIN [Suspect]
     Active Substance: LORATADINE
     Indication: NASAL DISORDER
     Dosage: CONSUMER HAS BEEN USING THE PRODUCT FOR YEARS.
     Route: 065
  2. CLARITIN [Suspect]
     Active Substance: LORATADINE
     Indication: NASAL DISORDER
     Dosage: 2 DF, UNK; 1 TABLET AT 11:00 AM AND 1 TABLET AT 3:00 PM
  3. SINGULAIR [Concomitant]
     Active Substance: MONTELUKAST SODIUM
     Dosage: UNK

REACTIONS (8)
  - Oropharyngeal pain [Unknown]
  - Throat irritation [Unknown]
  - Incorrect dosage administered [Unknown]
  - Off label use [Unknown]
  - Product use in unapproved indication [Unknown]
  - Productive cough [Not Recovered/Not Resolved]
  - Fungal pharyngitis [Not Recovered/Not Resolved]
  - Ear discomfort [Unknown]
